FAERS Safety Report 10946926 (Version 1)
Quarter: 2015Q1

REPORT INFORMATION
  Report Type: Report from Study
  Country: GR (occurrence: GR)
  Receive Date: 20150323
  Receipt Date: 20150323
  Transmission Date: 20150721
  Serious: Yes (Death, Hospitalization, Other)
  Sender: FDA-Public Use
  Company Number: GR-BAYER-2015-020066

PATIENT
  Age: 71 Year
  Sex: Male
  Weight: 70 kg

DRUGS (7)
  1. NEXAVAR [Suspect]
     Active Substance: SORAFENIB
     Indication: HEPATOCELLULAR CARCINOMA
     Dosage: DAILY DOSE 400 MG
     Route: 048
     Dates: start: 20140804, end: 20150115
  2. INDERAL [Concomitant]
     Active Substance: PROPRANOLOL HYDROCHLORIDE
     Dosage: DAILY DOSE 20 MG
     Dates: start: 201406
  3. ARIXTRA [Concomitant]
     Active Substance: FONDAPARINUX SODIUM
     Dosage: DAILY DOSE 2.5 MG
     Dates: start: 201407
  4. ALDACTONE [Concomitant]
     Active Substance: SPIRONOLACTONE
     Dosage: 100, DAILY
     Dates: start: 201406
  5. LANTUS [Concomitant]
     Active Substance: INSULIN GLARGINE
     Dosage: DAILY DOSE 20 IU
     Dates: start: 201406
  6. DOXORUBICIN [Concomitant]
     Active Substance: DOXORUBICIN
     Indication: HEPATOCELLULAR CARCINOMA
     Dosage: 100 MG
  7. BARACLUDE [Concomitant]
     Active Substance: ENTECAVIR
     Dosage: DAILY DOSE 0.5 MG
     Dates: start: 201406

REACTIONS (2)
  - Renal failure [Recovering/Resolving]
  - Hepatorenal syndrome [Fatal]

NARRATIVE: CASE EVENT DATE: 20150115
